FAERS Safety Report 24829807 (Version 1)
Quarter: 2025Q1

REPORT INFORMATION
  Report Type: Spontaneous
  Country: PT (occurrence: PT)
  Receive Date: 20250110
  Receipt Date: 20250110
  Transmission Date: 20250408
  Serious: Yes (Other)
  Sender: GLAXOSMITHKLINE
  Company Number: PT-GSK-PT2025GSK001818

PATIENT

DRUGS (6)
  1. LAMIVUDINE [Suspect]
     Active Substance: LAMIVUDINE
     Indication: HIV infection
  2. ABACAVIR [Suspect]
     Active Substance: ABACAVIR
     Indication: HIV infection
  3. DOLUTEGRAVIR [Suspect]
     Active Substance: DOLUTEGRAVIR
     Indication: HIV infection
  4. TENOFOVIR DISOPROXIL FUMARATE [Suspect]
     Active Substance: TENOFOVIR DISOPROXIL FUMARATE
     Indication: HIV infection
  5. EMTRICITABINE [Suspect]
     Active Substance: EMTRICITABINE
     Indication: HIV infection
  6. ATAZANAVIR [Suspect]
     Active Substance: ATAZANAVIR
     Indication: HIV infection

REACTIONS (4)
  - Eyelid ptosis [Unknown]
  - Strabismus [Unknown]
  - Amaurosis [Unknown]
  - Glaucoma [Unknown]
